FAERS Safety Report 24405041 (Version 1)
Quarter: 2024Q4

REPORT INFORMATION
  Report Type: Spontaneous
  Country: CN (occurrence: CN)
  Receive Date: 20241007
  Receipt Date: 20241007
  Transmission Date: 20250115
  Serious: No
  Sender: ROCHE
  Company Number: CN-ROCHE-3547625

PATIENT
  Age: 70 Year
  Sex: Female
  Weight: 67.0 kg

DRUGS (1)
  1. GAZYVA [Suspect]
     Active Substance: OBINUTUZUMAB
     Indication: Non-Hodgkin^s lymphoma
     Dosage: SUBSEQUENT DOSE WAS RECEIVED ON  09/APR/2024
     Route: 041
     Dates: start: 20240323

REACTIONS (2)
  - Dry throat [Recovering/Resolving]
  - Throat irritation [Recovering/Resolving]

NARRATIVE: CASE EVENT DATE: 20240323
